FAERS Safety Report 7731104-3 (Version None)
Quarter: 2011Q3

REPORT INFORMATION
  Report Type: 
  Country: None (occurrence: None)
  Receive Date: 20110906
  Receipt Date: 20110906
  Transmission Date: 20111222
  Serious: Yes (Life-Threatening, Other)
  Sender: FDA-Public Use
  Company Number: None

PATIENT
  Age: 62 Year
  Sex: Female
  Weight: 47.627 kg

DRUGS (1)
  1. CHANTIX [Suspect]
     Indication: SMOKING CESSATION THERAPY
     Dosage: ONE HALF OF 1 MG TABLET
     Route: 048
     Dates: start: 20091001, end: 20100228

REACTIONS (3)
  - INSOMNIA [None]
  - ABNORMAL DREAMS [None]
  - WEIGHT DECREASED [None]
